FAERS Safety Report 10758236 (Version 1)
Quarter: 2015Q1

REPORT INFORMATION
  Report Type: Spontaneous
  Country: US (occurrence: None)
  Receive Date: 20150202
  Receipt Date: 20150202
  Transmission Date: 20150721
  Serious: Yes (Hospitalization)
  Sender: FDA-Public Use
  Company Number: None

PATIENT
  Age: 66 Year
  Sex: Male
  Weight: 61.3 kg

DRUGS (4)
  1. METHOTREXATE [Suspect]
     Active Substance: METHOTREXATE
     Dates: end: 20150108
  2. VINCRISTINE SULFATE. [Suspect]
     Active Substance: VINCRISTINE SULFATE
     Dates: end: 20150108
  3. PROCARBAZINE [Suspect]
     Active Substance: PROCARBAZINE
     Dates: end: 20150114
  4. RITUXIMAB [Suspect]
     Active Substance: RITUXIMAB
     Dates: end: 20150108

REACTIONS (12)
  - Alanine aminotransferase increased [None]
  - Thrombocytopenia [None]
  - Depression [None]
  - Insomnia [None]
  - General physical health deterioration [None]
  - Tremor [None]
  - Constipation [None]
  - Dyspepsia [None]
  - Productive cough [None]
  - Thrombosis [None]
  - Candida infection [None]
  - Urinary retention [None]

NARRATIVE: CASE EVENT DATE: 20150119
